FAERS Safety Report 9996149 (Version 2)
Quarter: 2014Q1

REPORT INFORMATION
  Report Type: Report from Study
  Country: AU (occurrence: AU)
  Receive Date: 20140311
  Receipt Date: 20140311
  Transmission Date: 20141002
  Serious: Yes (Other)
  Sender: FDA-Public Use
  Company Number: PHHY2014AU021645

PATIENT
  Age: 76 Year
  Sex: Female

DRUGS (18)
  1. ACLASTA [Suspect]
     Indication: OSTEOPOROSIS
     Dosage: 5 MG, UNK
     Route: 042
     Dates: start: 20110708
  2. ACLASTA [Suspect]
     Dosage: 5 MG, UNK
     Route: 042
     Dates: start: 20121010
  3. VITAMIN D3 [Concomitant]
     Dosage: UNK UKN, UNK
  4. ASASANTIN - SLOW RELEASE [Concomitant]
     Dosage: 1 DF, BID
  5. ASMOL [Concomitant]
     Indication: COUGH
     Dosage: 2 PUFFS TWO HOURLY AS NEEDED
  6. ASMOL [Concomitant]
     Indication: DYSPNOEA
  7. CITRACAL [Concomitant]
     Dosage: 1.19 G IN THE MORNING
  8. DENOSUMAB [Concomitant]
     Dosage: 60 MG, 6 MONTHLY
  9. ENSURE [Concomitant]
     Dosage: 1 DF (1 TUBE IN THE EVENING)
  10. MEGAFOL [Concomitant]
     Dosage: 1 MG, UNK
  11. OSTEVIT-D [Concomitant]
     Dosage: 1000 IU IN THE MORNING
  12. PANAMAX [Concomitant]
     Indication: PAIN
     Dosage: 1 3 TIMES A DAY PLUS 2 TABLETS DAILY PRN
  13. PRIMIDONE [Concomitant]
     Dosage: 250 MG,DAILY
  14. PROGOUT [Concomitant]
     Dosage: 100 MG, DAILY
  15. SERETIDE MDI [Concomitant]
     Dosage: 1 DF, BID (1 INHALATION BID VIA SPACER)
     Route: 055
  16. SOMAC [Concomitant]
     Dosage: 40 MG, IN THE MORNING
  17. SPIRIVA [Concomitant]
     Dosage: 18 UG, IN THE MORNING
  18. VENTOLIN NEBULES PF [Concomitant]
     Dosage: 1 NEBULE EVERY 4 HOURS PRN VIA NEBULIZER

REACTIONS (7)
  - Peripheral vascular disorder [Unknown]
  - Dementia [Unknown]
  - Glomerular filtration rate decreased [Unknown]
  - Blood triglycerides increased [Unknown]
  - Gamma-glutamyltransferase increased [Unknown]
  - Blood potassium increased [Unknown]
  - Blood uric acid increased [Unknown]
